FAERS Safety Report 12840361 (Version 3)
Quarter: 2020Q4

REPORT INFORMATION
  Report Type: Report from Study
  Country: US (occurrence: US)
  Receive Date: 20161012
  Receipt Date: 20201006
  Transmission Date: 20210113
  Serious: Yes (Hospitalization, Other)
  Sender: FDA-Public Use
  Company Number: US-SA-2016SA184514

PATIENT

DRUGS (1)
  1. ALEMTUZUMAB [Suspect]
     Active Substance: ALEMTUZUMAB
     Indication: MULTIPLE SCLEROSIS
     Dosage: 12 MG,QD
     Route: 041
     Dates: start: 20160912, end: 20160916

REACTIONS (10)
  - Asthenia [Not Recovered/Not Resolved]
  - Rash [Unknown]
  - Musculoskeletal disorder [Unknown]
  - Urticaria [Unknown]
  - Hepatic enzyme increased [Recovered/Resolved]
  - Fluid retention [Unknown]
  - Multiple sclerosis relapse [Unknown]
  - Muscular weakness [Recovered/Resolved]
  - Decreased immune responsiveness [Not Recovered/Not Resolved]
  - Gait inability [Recovered/Resolved]

NARRATIVE: CASE EVENT DATE: 201609
